FAERS Safety Report 6757155-3 (Version None)
Quarter: 2010Q2

REPORT INFORMATION
  Report Type: 
  Country: None (occurrence: None)
  Receive Date: 20100607
  Receipt Date: 20100602
  Transmission Date: 20101027
  Serious: Yes (Death)
  Sender: FDA-Public Use
  Company Number: US-SHIRE-SPV1-2009-00850

PATIENT

DRUGS (6)
  1. VYVANSE [Suspect]
     Indication: ATTENTION DEFICIT/HYPERACTIVITY DISORDER
     Dosage: 30 MG, 1X/DAY:QD
     Route: 048
     Dates: start: 20081209, end: 20090331
  2. VYVANSE [Suspect]
     Dosage: 50 MG, 1X/DAY:QD
     Route: 048
     Dates: start: 20090401
  3. SYMBYAX [Suspect]
     Indication: AGGRESSION
     Dosage: 3/25MG, 1X/DAY:QD @HS; (3MG OLANZAPINE/25MG FLUOXETINE)
     Route: 065
     Dates: start: 20090318
  4. LEXAPRO [Concomitant]
     Indication: ANXIETY
     Dosage: 5 MG (HALF OF 10MG TABLET) EVERY MORNING; 1X/DAY:QD
     Route: 065
     Dates: start: 20090203, end: 20090318
  5. LEXAPRO [Concomitant]
     Indication: CRYING
  6. LEXAPRO [Concomitant]
     Indication: COMPULSIONS

REACTIONS (9)
  - AGGRESSION [None]
  - ANXIETY [None]
  - COMPLETED SUICIDE [None]
  - COMPULSIONS [None]
  - CONDITION AGGRAVATED [None]
  - CONDUCT DISORDER [None]
  - CRYING [None]
  - FLAT AFFECT [None]
  - IMPULSE-CONTROL DISORDER [None]
